FAERS Safety Report 17621499 (Version 2)
Quarter: 2024Q2

REPORT INFORMATION
  Report Type: Spontaneous
  Country: DE (occurrence: DE)
  Receive Date: 20200403
  Receipt Date: 20240402
  Transmission Date: 20240716
  Serious: Yes (Hospitalization, Other)
  Sender: FDA-Public Use
  Company Number: None

PATIENT
  Age: 6 Year
  Sex: Female

DRUGS (13)
  1. CARBAMAZEPINE [Suspect]
     Active Substance: CARBAMAZEPINE
     Indication: Partial seizures
     Dosage: UNKNOWN
  2. LAMOTRIGINE [Suspect]
     Active Substance: LAMOTRIGINE
     Indication: Tuberous sclerosis complex
     Dosage: UNKNOWN
     Route: 065
  3. TOPIRAMATE [Suspect]
     Active Substance: TOPIRAMATE
     Indication: Partial seizures
     Dosage: UNKNOWN
  4. ZONISAMIDE [Suspect]
     Active Substance: ZONISAMIDE
     Indication: Partial seizures
     Dosage: UNKNOWN
  5. VALPROATE [Suspect]
     Active Substance: VALPROIC ACID
     Indication: Partial seizures
     Dosage: UNKNOWN
  6. VIGABATRIN [Suspect]
     Active Substance: VIGABATRIN
     Indication: Partial seizures
     Dosage: UNKNOWN
  7. OXCARBAZEPINE [Suspect]
     Active Substance: OXCARBAZEPINE
     Indication: Partial seizures
     Dosage: UNKNOWN
  8. SULTHIAME [Suspect]
     Active Substance: SULTHIAME
     Indication: Partial seizures
     Dosage: UNKNOWN
  9. LACOSAMIDE [Suspect]
     Active Substance: LACOSAMIDE
     Indication: Tuberous sclerosis complex
     Dosage: UNKNOWN
     Route: 065
  10. CANNABIDIOL [Interacting]
     Active Substance: CANNABIDIOL
     Indication: Epilepsy
     Dosage: 500 MG, QD (20.4 MG/KG/DAY), SOLUTION
     Route: 065
  11. CLOBAZAM [Interacting]
     Active Substance: CLOBAZAM
     Indication: Tuberous sclerosis complex
     Dosage: 2.5 MG, BID
     Route: 065
     Dates: start: 2018
  12. EVEROLIMUS [Interacting]
     Active Substance: EVEROLIMUS
     Indication: Epilepsy
     Dosage: 0.13 MG/KG, QD
     Route: 065
  13. PROPRANOLOL [Concomitant]
     Active Substance: PROPRANOLOL HYDROCHLORIDE
     Indication: Tuberous sclerosis complex
     Dosage: UNK
     Route: 065

REACTIONS (8)
  - Drug interaction [Unknown]
  - Tonic convulsion [Unknown]
  - Off label use [Unknown]
  - Drug level increased [Not Recovered/Not Resolved]
  - Epilepsy [Unknown]
  - Drug ineffective [Unknown]
  - Therapeutic product effective for unapproved indication [Unknown]
  - Therapeutic product ineffective for unapproved indication [Unknown]

NARRATIVE: CASE EVENT DATE: 20181027
